FAERS Safety Report 13100202 (Version 3)
Quarter: 2017Q1

REPORT INFORMATION
  Report Type: Report from Study
  Country: US (occurrence: US)
  Receive Date: 20170110
  Receipt Date: 20170331
  Transmission Date: 20170428
  Serious: Yes (Other)
  Sender: FDA-Public Use
  Company Number: US-AEGERION PHARMACEUTICAL INC-AEGR002875

PATIENT
  Age: 68 Year
  Sex: Female
  Weight: 87.98 kg

DRUGS (16)
  1. NITROGLYCERIN. [Concomitant]
     Active Substance: NITROGLYCERIN
     Indication: CORONARY ARTERY DISEASE
     Dosage: 0.4 MG, PRN
     Route: 060
     Dates: start: 20110208
  2. TRAMADOL. [Concomitant]
     Active Substance: TRAMADOL
     Indication: OSTEOARTHRITIS
     Dosage: 25 MG, PRN
     Route: 048
     Dates: start: 2014
  3. VITAMIN E [Concomitant]
     Active Substance: .ALPHA.-TOCOPHEROL
     Indication: SUPPLEMENTATION THERAPY
     Dosage: 400 UNITS, QD
     Route: 048
     Dates: start: 20140626
  4. ASPIRIN. [Concomitant]
     Active Substance: ASPIRIN
     Indication: CORONARY ARTERY DISEASE
     Dosage: 81 MG, QD
     Route: 048
     Dates: start: 20130828
  5. JUXTAPID [Suspect]
     Active Substance: LOMITAPIDE MESYLATE
     Indication: TYPE IIA HYPERLIPIDAEMIA
     Dosage: 5 MG, QD
     Route: 048
     Dates: start: 20140626, end: 20161121
  6. LISINOPRIL. [Concomitant]
     Active Substance: LISINOPRIL
     Indication: HYPERTENSION
     Dosage: 10 MG, QD
     Route: 048
     Dates: start: 20160520
  7. LYRICA [Concomitant]
     Active Substance: PREGABALIN
     Indication: OSTEOARTHRITIS
     Dosage: 50 MG, TID
     Route: 048
     Dates: start: 20080715
  8. VITAMIN D3 [Concomitant]
     Active Substance: CHOLECALCIFEROL
     Indication: SUPPLEMENTATION THERAPY
     Dosage: 5000 UNITS, QD
     Route: 048
     Dates: start: 20120116
  9. COD LIVER OIL [Concomitant]
     Active Substance: COD LIVER OIL
     Indication: SUPPLEMENTATION THERAPY
     Dosage: 1 CAPSULE, QD
     Route: 048
     Dates: start: 20110902
  10. FUROSEMIDE. [Concomitant]
     Active Substance: FUROSEMIDE
     Indication: HYPERTENSION
     Dosage: 20 MG, PRN
     Route: 048
     Dates: start: 20141208
  11. MAGNESIUM [Concomitant]
     Active Substance: MAGNESIUM
     Indication: SUPPLEMENTATION THERAPY
     Dosage: 250 MG, QD
     Route: 048
     Dates: start: 20110902
  12. METOPROLOL TARTRATE. [Concomitant]
     Active Substance: METOPROLOL TARTRATE
     Indication: CORONARY ARTERY DISEASE
     Dosage: 50 MG, QD
     Route: 048
     Dates: start: 20120918
  13. CLOPIDOGREL [Concomitant]
     Active Substance: CLOPIDOGREL BISULFATE
     Indication: CORONARY ARTERY DISEASE
     Dosage: 75 MG, QD
     Route: 048
     Dates: start: 2007
  14. MELOXICAM. [Concomitant]
     Active Substance: MELOXICAM
     Indication: OSTEOARTHRITIS
     Dosage: 7.5-15 MG, PRN
     Route: 048
     Dates: start: 20121010
  15. ODORLESS GARLIC [Concomitant]
     Indication: SUPPLEMENTATION THERAPY
     Dosage: 1000 MG, QD
     Route: 048
     Dates: start: 20081112
  16. RANITIDINE. [Concomitant]
     Active Substance: RANITIDINE
     Indication: GASTROOESOPHAGEAL REFLUX DISEASE
     Dosage: 75 MG, QD
     Route: 048
     Dates: start: 20120813

REACTIONS (5)
  - Abscess [Recovered/Resolved]
  - Nausea [Recovered/Resolved]
  - Rectal spasm [Recovered/Resolved]
  - Haematochezia [Recovered/Resolved]
  - Therapy cessation [Not Recovered/Not Resolved]

NARRATIVE: CASE EVENT DATE: 201611
